FAERS Safety Report 12744932 (Version 1)
Quarter: 2016Q3

REPORT INFORMATION
  Report Type: Other
  Country: NL (occurrence: NL)
  Receive Date: 20160915
  Receipt Date: 20160915
  Transmission Date: 20161109
  Serious: Yes (Other)
  Sender: FDA-Public Use
  Company Number: NL-NOVEL LABORATORIES, INC-2016-03277

PATIENT
  Sex: Female

DRUGS (1)
  1. CLOBETASOL [Suspect]
     Active Substance: CLOBETASOL
     Indication: ECZEMA
     Dosage: 0.5MG/G
     Route: 065

REACTIONS (1)
  - Steroid withdrawal syndrome [Recovering/Resolving]
